FAERS Safety Report 10533563 (Version 3)
Quarter: 2014Q4

REPORT INFORMATION
  Report Type: Report from Study
  Country: PE (occurrence: PE)
  Receive Date: 20141022
  Receipt Date: 20141120
  Transmission Date: 20150529
  Serious: Yes (Hospitalization, Other)
  Sender: FDA-Public Use
  Company Number: PE-BRISTOL-MYERS SQUIBB COMPANY-20607719

PATIENT
  Age: 32 Year
  Sex: Male
  Weight: 65 kg

DRUGS (4)
  1. ETHAMBUTOL [Suspect]
     Active Substance: ETHAMBUTOL HYDROCHLORIDE
     Indication: TUBERCULOSIS
     Dosage: 1 DF=150/75/400/275 MG?07MAR14:275 MG?LAST DOSE : 19MAR2014
     Route: 048
     Dates: start: 20140307
  2. ISONIAZID+PYRAZINAMIDE+RIFAMPICIN [Suspect]
     Active Substance: ISONIAZID\PYRAZINAMIDE\RIFAMPIN
     Indication: TUBERCULOSIS
     Dosage: 1 DF= 150/75/400/275 MG,HIGHEST DOSE-3600MG, 07MAR2014?CAPS, LAST DOSE : 19MAR2014
     Route: 048
     Dates: start: 20140307
  3. STOCRIN CAPS [Suspect]
     Active Substance: EFAVIRENZ
     Indication: TUBERCULOSIS
     Route: 048
     Dates: start: 20140305
  4. EMTRICITABINE/TENOFOVIR DISOPROXIL FUMARATE [Suspect]
     Active Substance: EMTRICITABINE\TENOFOVIR DISOPROXIL
     Indication: TUBERCULOSIS
     Dosage: 1 DF = 300/200 MG-HIGHEST DOSE-500MG?CAPS
     Route: 048
     Dates: start: 20140305

REACTIONS (2)
  - Lymph node tuberculosis [Recovered/Resolved with Sequelae]
  - Anaemia [Recovered/Resolved]

NARRATIVE: CASE EVENT DATE: 20140319
